FAERS Safety Report 7142021-4 (Version None)
Quarter: 2010Q4

REPORT INFORMATION
  Report Type: 
  Country: None (occurrence: None)
  Receive Date: 20101207
  Receipt Date: 20101130
  Transmission Date: 20110411
  Serious: Yes (Hospitalization, Other)
  Sender: FDA-Public Use
  Company Number: A0892040A

PATIENT
  Age: 43 Year
  Sex: Male
  Weight: 63.6 kg

DRUGS (1)
  1. LAMICTAL [Suspect]
     Indication: CONVULSION
     Dosage: 200MG AT NIGHT
     Route: 048
     Dates: start: 20100311, end: 20100603

REACTIONS (5)
  - CEREBRAL INFARCTION [None]
  - CEREBROVASCULAR ACCIDENT [None]
  - HEADACHE [None]
  - MUSCULAR WEAKNESS [None]
  - PERSONALITY CHANGE [None]
